FAERS Safety Report 23643465 (Version 1)
Quarter: 2024Q1

REPORT INFORMATION
  Report Type: Spontaneous
  Country: US (occurrence: US)
  Receive Date: 20240318
  Receipt Date: 20240318
  Transmission Date: 20240410
  Serious: No
  Sender: FDA-Public Use
  Company Number: US-BAYER-2024A039139

PATIENT
  Sex: Female

DRUGS (1)
  1. MIRALAX [Suspect]
     Active Substance: POLYETHYLENE GLYCOL 3350
     Indication: Product used for unknown indication
     Dosage: I TOOK 1 HALF A TABLESPOON YESTERDAY AND  1 TABLESPOON TODAY TABLESPOON
     Route: 048

REACTIONS (1)
  - Incorrect dose administered [Unknown]
